FAERS Safety Report 8948312 (Version 1)
Quarter: 2012Q4

REPORT INFORMATION
  Report Type: 
  Country: US (occurrence: US)
  Receive Date: 20121206
  Receipt Date: 20121206
  Transmission Date: 20130627
  Serious: Yes (Hospitalization)
  Sender: FDA-Public Use
  Company Number: PHEH2012US023808

PATIENT
  Sex: Male

DRUGS (1)
  1. GLEEVEC [Suspect]
     Dosage: 150 mg, BID
     Route: 048
     Dates: start: 20121001

REACTIONS (3)
  - Ankle fracture [Unknown]
  - Fall [Unknown]
  - Dizziness [Unknown]
